FAERS Safety Report 11105692 (Version 1)
Quarter: 2015Q2

REPORT INFORMATION
  Report Type: Spontaneous
  Country: US (occurrence: None)
  Receive Date: 20150508
  Receipt Date: 20150508
  Transmission Date: 20150821
  Serious: Yes (Death, Hospitalization)
  Sender: FDA-Public Use
  Company Number: 2015COR00088

PATIENT
  Age: 58 Year
  Sex: Female

DRUGS (3)
  1. SERTRALINE [Suspect]
     Active Substance: SERTRALINE HYDROCHLORIDE
  2. GRANISETRON [Suspect]
     Active Substance: GRANISETRON
     Indication: ANTIEMETIC SUPPORTIVE CARE
  3. UNSPECIFIED CHEMOTHERAPY (UNSPECIFIED) UNKNOWN [Suspect]
     Active Substance: UNSPECIFIED INGREDIENT
     Indication: BREAST CANCER

REACTIONS (2)
  - Posterior reversible encephalopathy syndrome [None]
  - Serotonin syndrome [None]
